FAERS Safety Report 4469108-9 (Version None)
Quarter: 2004Q4

REPORT INFORMATION
  Report Type: 
  Country: None (occurrence: None)
  Receive Date: 20041005
  Receipt Date: 20040922
  Transmission Date: 20050328
  Serious: Yes (Hospitalization, Disabling)
  Sender: FDA-Public Use
  Company Number: HQWYE246624SEP04

PATIENT
  Age: 29 Year
  Sex: Female

DRUGS (1)
  1. EFFEXOR [Suspect]
     Indication: TREMOR
     Dosage: 75 MG 1X PER 1 DAY
     Route: 048
     Dates: start: 20040101

REACTIONS (20)
  - ACCOMMODATION DISORDER [None]
  - ANXIETY [None]
  - BONE PAIN [None]
  - DEMYELINATION [None]
  - DIPLOPIA [None]
  - DIZZINESS [None]
  - DRY MOUTH [None]
  - EYE PAIN [None]
  - HEADACHE [None]
  - HYPERHIDROSIS [None]
  - INSOMNIA [None]
  - KERATOCONJUNCTIVITIS SICCA [None]
  - NAUSEA [None]
  - NERVOUSNESS [None]
  - OPTIC NEURITIS [None]
  - PHOTOPHOBIA [None]
  - RASH [None]
  - VISUAL DISTURBANCE [None]
  - VISUAL FIELD DEFECT [None]
  - WEIGHT DECREASED [None]
